FAERS Safety Report 6907687-X (Version None)
Quarter: 2010Q3

REPORT INFORMATION
  Report Type: 
  Country: None (occurrence: None)
  Receive Date: 20100803
  Receipt Date: 20090707
  Transmission Date: 20110219
  Serious: Yes (Hospitalization)
  Sender: FDA-Public Use
  Company Number: US-1169566

PATIENT
  Sex: Female

DRUGS (3)
  1. NAPHCON-A [Suspect]
     Indication: EYE PRURITUS
     Dosage: 1 GTT OU BID OPHTHALMIC
     Route: 047
  2. CALCIUM [Concomitant]
  3. VITAMIN TAB [Concomitant]

REACTIONS (3)
  - ASTHENOPIA [None]
  - FOREIGN BODY SENSATION IN EYES [None]
  - OCULAR HYPERAEMIA [None]
